FAERS Safety Report 5121186-X (Version None)
Quarter: 2006Q4

REPORT INFORMATION
  Report Type: 
  Country: None (occurrence: None)
  Receive Date: 20061002
  Receipt Date: 20060913
  Transmission Date: 20070319
  Serious: Yes (Hospitalization, Other)
  Sender: FDA-Public Use
  Company Number: ACO_0268_2006

PATIENT
  Age: 64 Year
  Sex: Female

DRUGS (9)
  1. ZANAFLEX [Suspect]
     Indication: PAIN
     Dosage: 4 MG BID
     Dates: start: 20060801
  2. VINFLUNINE [Suspect]
     Indication: SMALL CELL LUNG CANCER STAGE UNSPECIFIED
     Dosage: 486 MG ONCE IV
     Route: 042
     Dates: start: 20060802, end: 20060802
  3. VICODIN [Suspect]
     Indication: PAIN
     Dosage: 1 DF PRN
     Dates: start: 20060701
  4. FOSAMAX [Concomitant]
  5. LIPITOR [Concomitant]
  6. CALCIUM GLUCONATE [Concomitant]
  7. GABAPENTIN [Concomitant]
  8. DICLOFENAC [Concomitant]
  9. OXYCONTIN [Concomitant]

REACTIONS (5)
  - ANAEMIA [None]
  - CONSTIPATION [None]
  - LEUKOPENIA [None]
  - PAIN [None]
  - THROMBOCYTOPENIA [None]
